APPROVED DRUG PRODUCT: ALKERAN
Active Ingredient: MELPHALAN
Strength: 2MG **Federal Register determination that product was not discontinued or withdrawn for safety or effectiveness reasons**
Dosage Form/Route: TABLET;ORAL
Application: N014691 | Product #002
Applicant: APOTEX INC
Approved: Approved Prior to Jan 1, 1982 | RLD: Yes | RS: No | Type: DISCN